FAERS Safety Report 21290395 (Version 7)
Quarter: 2023Q4

REPORT INFORMATION
  Report Type: Report from Study
  Country: US (occurrence: US)
  Receive Date: 20220902
  Receipt Date: 20231215
  Transmission Date: 20240110
  Serious: Yes (Hospitalization, Other)
  Sender: FDA-Public Use
  Company Number: US-TAKEDA-2022TUS060554

PATIENT
  Sex: Female

DRUGS (2)
  1. HUMAN IMMUNOGLOBULIN G [Suspect]
     Active Substance: HUMAN IMMUNOGLOBULIN G
     Indication: Immunodeficiency common variable
     Dosage: UNK
     Route: 042
  2. PREDNISONE [Suspect]
     Active Substance: PREDNISONE
     Indication: Product used for unknown indication
     Dosage: UNK
     Route: 065

REACTIONS (17)
  - Internal haemorrhage [Unknown]
  - Pneumonia [Unknown]
  - Systemic lupus erythematosus [Unknown]
  - Intracranial pressure increased [Unknown]
  - Seizure [Not Recovered/Not Resolved]
  - Pulmonary embolism [Unknown]
  - Ovarian mass [Unknown]
  - Memory impairment [Unknown]
  - Antinuclear antibody positive [Unknown]
  - Limb injury [Unknown]
  - Red blood cell sedimentation rate increased [Unknown]
  - Complication associated with device [Unknown]
  - Immune system disorder [Unknown]
  - Concussion [Unknown]
  - Malaise [Unknown]
  - Vomiting [Unknown]
  - Headache [Unknown]
